FAERS Safety Report 17856934 (Version 1)
Quarter: 2020Q2

REPORT INFORMATION
  Report Type: Spontaneous
  Country: DE (occurrence: DE)
  Receive Date: 20200603
  Receipt Date: 20200603
  Transmission Date: 20200714
  Serious: Yes (Hospitalization)
  Sender: FDA-Public Use
  Company Number: NVSC2020DE152316

PATIENT
  Sex: Female
  Weight: 70 kg

DRUGS (2)
  1. PEGFILGRASTIM [Suspect]
     Active Substance: PEGFILGRASTIM
     Dosage: 6 MG, (CYCLE)
     Route: 058
     Dates: start: 20200214
  2. PEGFILGRASTIM [Suspect]
     Active Substance: PEGFILGRASTIM
     Indication: PRODUCT USED FOR UNKNOWN INDICATION
     Dosage: 6 MG, (CYCLE)
     Route: 058
     Dates: start: 20191221

REACTIONS (4)
  - Neutropenic sepsis [Recovered/Resolved]
  - Respiratory failure [Recovered/Resolved]
  - Pancytopenia [Recovered/Resolved]
  - Pneumonia fungal [Recovered/Resolved]

NARRATIVE: CASE EVENT DATE: 20200220
